FAERS Safety Report 8356232-3 (Version None)
Quarter: 2012Q1

REPORT INFORMATION
  Report Type: 
  Country: None (occurrence: None)
  Receive Date: 20120315
  Receipt Date: 20110420
  Transmission Date: 20120608
  Serious: Yes (Other)
  Sender: FDA-Public Use
  Company Number: PHHY2011US25109

PATIENT
  Age: 62 Year
  Sex: Female
  Weight: 70.7 kg

DRUGS (2)
  1. GILENYA [Suspect]
     Indication: MULTIPLE SCLEROSIS
     Dosage: 0.5 MG, QD, ORAL
     Route: 048
     Dates: start: 20110406
  2. GILENYA [Suspect]
     Indication: MULTIPLE SCLEROSIS
     Dosage: 0.5 MG, QD, ORAL
     Route: 048
     Dates: start: 20110225

REACTIONS (5)
  - PAIN [None]
  - HYPERTENSION [None]
  - VISUAL ACUITY REDUCED [None]
  - FATIGUE [None]
  - DYSSTASIA [None]
